FAERS Safety Report 18146442 (Version 1)
Quarter: 2020Q3

REPORT INFORMATION
  Report Type: Not Available
  Country: None (occurrence: US)
  Receive Date: 20200813
  Receipt Date: 20200813
  Transmission Date: 20201103
  Serious: Yes (Other)
  Sender: FDA-Public Use
  Company Number: US-C B FLEET CO INC-202008-US-002853

PATIENT
  Sex: Female

DRUGS (2)
  1. TOPAMAX [Concomitant]
     Active Substance: TOPIRAMATE
  2. CLEAR EYES MAXIMUM ITCHY EYE RELIEF [Suspect]
     Active Substance: GLYCERIN\NAPHAZOLINE HYDROCHLORIDE\ZINC SULFATE
     Indication: EYE PRURITUS
     Dosage: I USED IT LAST NIGHT, 3 DROPS IN EACH EYE.
     Route: 047

REACTIONS (2)
  - Eye discharge [Recovered/Resolved]
  - Generalised tonic-clonic seizure [Recovered/Resolved]
